FAERS Safety Report 6117731-8 (Version None)
Quarter: 2009Q1

REPORT INFORMATION
  Report Type: 
  Country: None (occurrence: None)
  Receive Date: 20090314
  Receipt Date: 20090123
  Transmission Date: 20090719
  Serious: Yes (Other)
  Sender: FDA-Public Use
  Company Number: US-ABBOTT-09P-163-0499990-00

PATIENT
  Sex: Female
  Weight: 56.75 kg

DRUGS (4)
  1. HUMIRA [Suspect]
     Indication: CROHN'S DISEASE
     Route: 058
     Dates: start: 20080801, end: 20090101
  2. HUMIRA [Suspect]
     Indication: ARTHRITIS
     Route: 058
     Dates: start: 20090101
  3. CORTISONE INJECTIONS [Concomitant]
     Indication: MUSCULOSKELETAL PAIN
  4. SULFASALAZINE [Concomitant]
     Indication: CROHN'S DISEASE

REACTIONS (9)
  - ALOPECIA [None]
  - ARTHRALGIA [None]
  - CYST [None]
  - DRUG INEFFECTIVE [None]
  - INJECTION SITE IRRITATION [None]
  - MENISCUS LESION [None]
  - MENSTRUATION IRREGULAR [None]
  - METRORRHAGIA [None]
  - PREMENSTRUAL SYNDROME [None]
